FAERS Safety Report 5592155-0 (Version None)
Quarter: 2008Q1

REPORT INFORMATION
  Report Type: 
  Country: None (occurrence: None)
  Receive Date: 20080115
  Receipt Date: 20071004
  Transmission Date: 20080703
  Serious: No
  Sender: FDA-Public Use
  Company Number: US-ABBOTT-07P-163-0419746-00

PATIENT
  Sex: Male
  Weight: 89.892 kg

DRUGS (9)
  1. ADVICOR [Suspect]
     Indication: LDL/HDL RATIO
     Route: 048
     Dates: start: 20070928
  2. LANSOPRAZOLE [Concomitant]
     Indication: DRUG USE FOR UNKNOWN INDICATION
     Route: 048
  3. LEVOTHYROXINE SODIUM [Concomitant]
     Indication: DRUG USE FOR UNKNOWN INDICATION
     Route: 048
  4. ASMANEX 30 [Concomitant]
     Indication: DRUG USE FOR UNKNOWN INDICATION
     Route: 055
  5. SALBUTAMOL SULFATE [Concomitant]
     Indication: DRUG USE FOR UNKNOWN INDICATION
  6. ASPIRIN [Concomitant]
     Indication: DRUG USE FOR UNKNOWN INDICATION
     Route: 048
  7. PARACETAMOL [Concomitant]
     Indication: DRUG USE FOR UNKNOWN INDICATION
     Route: 048
  8. MORNIFLUMATE [Concomitant]
     Indication: DRUG USE FOR UNKNOWN INDICATION
     Route: 048
  9. CENTRUM [Concomitant]
     Indication: DRUG USE FOR UNKNOWN INDICATION
     Route: 048

REACTIONS (5)
  - ABNORMAL FAECES [None]
  - BOWEL MOVEMENT IRREGULARITY [None]
  - CONSTIPATION [None]
  - DYSPNOEA [None]
  - LETHARGY [None]
